FAERS Safety Report 13069446 (Version 1)
Quarter: 2016Q4

REPORT INFORMATION
  Report Type: Spontaneous
  Country: US (occurrence: US)
  Receive Date: 20161228
  Receipt Date: 20161228
  Transmission Date: 20170207
  Serious: Yes (Other)
  Sender: FDA-Public Use
  Company Number: US-WEST-WARD PHARMACEUTICALS CORP.-US-H14001-16-03029

PATIENT
  Age: 42 Year
  Sex: Male

DRUGS (6)
  1. FENTANYL. [Suspect]
     Active Substance: FENTANYL
     Dosage: DRIP
     Route: 041
  2. PROPOFOL. [Concomitant]
     Active Substance: PROPOFOL
     Indication: PRODUCT USED FOR UNKNOWN INDICATION
     Dosage: DRIP
     Route: 041
  3. VERSED [Concomitant]
     Active Substance: MIDAZOLAM HYDROCHLORIDE
     Indication: PRODUCT USED FOR UNKNOWN INDICATION
     Dosage: DRIP
     Route: 041
  4. FENTANYL. [Suspect]
     Active Substance: FENTANYL
     Indication: PRODUCT USED FOR UNKNOWN INDICATION
     Dosage: DRIP
     Route: 041
  5. PRECEDEX [Concomitant]
     Active Substance: DEXMEDETOMIDINE HYDROCHLORIDE
     Indication: PRODUCT USED FOR UNKNOWN INDICATION
     Dosage: DRIP
     Route: 041
  6. PAXIL [Suspect]
     Active Substance: PAROXETINE HYDROCHLORIDE
     Indication: PRODUCT USED FOR UNKNOWN INDICATION
     Route: 065

REACTIONS (1)
  - Serotonin syndrome [Recovered/Resolved]
